FAERS Safety Report 5514102-X (Version None)
Quarter: 2007Q4

REPORT INFORMATION
  Report Type: 
  Country: None (occurrence: None)
  Receive Date: 20071113
  Receipt Date: 20071101
  Transmission Date: 20080405
  Serious: Yes (Hospitalization)
  Sender: FDA-Public Use
  Company Number: JP-AMGEN-US214235

PATIENT
  Sex: Female
  Weight: 46 kg

DRUGS (11)
  1. ENBREL [Suspect]
     Indication: RHEUMATOID ARTHRITIS
     Route: 058
     Dates: start: 20070125
  2. PREDONINE [Suspect]
     Indication: RHEUMATOID ARTHRITIS
     Route: 048
     Dates: start: 20050101
  3. ALOSITOL [Suspect]
     Indication: HYPERURICAEMIA
     Route: 048
     Dates: start: 20070207, end: 20070221
  4. SULFASALAZINE [Suspect]
     Indication: RHEUMATOID ARTHRITIS
     Route: 048
     Dates: start: 20070117, end: 20070212
  5. CHLORPHENIRAMINE TAB [Concomitant]
     Dosage: UNSPECIFIED
     Route: 048
  6. KLARICID [Concomitant]
     Dosage: UNSPECIFIED
     Route: 048
  7. FAMOTIDINE [Concomitant]
     Dosage: UNSPECIFIED
     Route: 048
  8. TAKEPRON [Concomitant]
     Dosage: UNSPECIFIED
     Route: 048
  9. AMLODIN [Concomitant]
     Dosage: UNSPECIFIED
     Route: 048
  10. MUCOSTA [Concomitant]
     Dosage: UNSPECIFIED
     Route: 048
  11. MINOCYCLINE HCL [Concomitant]
     Dosage: UNSPECIFIED
     Route: 048

REACTIONS (3)
  - PLATELET COUNT DECREASED [None]
  - TOXIC SKIN ERUPTION [None]
  - WHITE BLOOD CELL COUNT DECREASED [None]
